FAERS Safety Report 10256396 (Version 1)
Quarter: 2014Q2

REPORT INFORMATION
  Report Type: Spontaneous
  Country: US (occurrence: US)
  Receive Date: 20140624
  Receipt Date: 20140624
  Transmission Date: 20141212
  Serious: No
  Sender: FDA-Public Use
  Company Number: US-ZOGENIX, INC.-2012ZX000154

PATIENT
  Sex: Male
  Weight: 113.5 kg

DRUGS (18)
  1. SUMAVEL DOSEPRO [Suspect]
     Indication: MIGRAINE
     Dates: start: 201202
  2. SUMAVEL DOSEPRO [Suspect]
     Dates: start: 20120419, end: 20120419
  3. SUMAVEL DOSEPRO [Suspect]
     Dates: start: 20120421, end: 20120421
  4. SUMAVEL DOSEPRO [Suspect]
     Dates: start: 20120423, end: 20120423
  5. SUMAVEL DOSEPRO [Suspect]
     Dates: start: 20120424, end: 20120424
  6. HYDROCODONE [Concomitant]
     Indication: PAIN
  7. METFORMIN [Concomitant]
     Indication: DIABETES MELLITUS
     Route: 048
  8. CYMBALTA [Concomitant]
     Indication: DEPRESSION
     Route: 048
  9. CYMBALTA [Concomitant]
     Indication: DEPRESSION
     Route: 048
  10. ASPIRIN [Concomitant]
     Indication: PRODUCT USED FOR UNKNOWN INDICATION
     Route: 048
  11. LOSARTAN [Concomitant]
     Indication: PRODUCT USED FOR UNKNOWN INDICATION
     Route: 048
  12. LEVOTHYROXINE [Concomitant]
     Indication: THYROID THERAPY
     Route: 048
  13. PANTOPRAZOLE [Concomitant]
     Indication: PRODUCT USED FOR UNKNOWN INDICATION
     Route: 048
  14. SIMVASTATIN [Concomitant]
     Indication: BLOOD CHOLESTEROL
     Route: 048
  15. ATENOLOL [Concomitant]
     Indication: PULMONARY HYPERTENSION
     Route: 048
  16. ZETIA [Concomitant]
     Indication: BLOOD CHOLESTEROL
     Route: 048
  17. SUMATRIPTAN NASAL SPRAY [Concomitant]
     Indication: MIGRAINE
  18. SUMATRIPTAN [Concomitant]
     Indication: MIGRAINE
     Route: 048

REACTIONS (1)
  - Drug effect incomplete [Recovered/Resolved]
